FAERS Safety Report 12193062 (Version 2)
Quarter: 2016Q2

REPORT INFORMATION
  Report Type: Report from Study
  Country: BR (occurrence: BR)
  Receive Date: 20160318
  Receipt Date: 20160408
  Transmission Date: 20160815
  Serious: Yes (Hospitalization)
  Sender: FDA-Public Use
  Company Number: BR-ABBVIE-16K-020-1582810-00

PATIENT
  Age: 21 Year
  Sex: Female
  Weight: 63 kg

DRUGS (4)
  1. HUMIRA [Suspect]
     Active Substance: ADALIMUMAB
     Indication: ANKYLOSING SPONDYLITIS
     Route: 058
     Dates: start: 20150504, end: 20160215
  2. TRAMAL [Concomitant]
     Active Substance: TRAMADOL
     Indication: MUSCLE RELAXANT THERAPY
     Route: 048
  3. VELIJA [Concomitant]
     Active Substance: DULOXETINE HYDROCHLORIDE
     Indication: PAIN
     Route: 048
     Dates: start: 201509
  4. AZULFIDINE [Concomitant]
     Active Substance: SULFASALAZINE
     Indication: CROHN^S DISEASE
     Route: 048
     Dates: start: 20160228

REACTIONS (2)
  - Joint stiffness [Recovering/Resolving]
  - Arthralgia [Recovering/Resolving]

NARRATIVE: CASE EVENT DATE: 201512
